FAERS Safety Report 5734992-5 (Version None)
Quarter: 2008Q2

REPORT INFORMATION
  Report Type: 
  Country: None (occurrence: None)
  Receive Date: 20080508
  Receipt Date: 20080508
  Transmission Date: 20081010
  Serious: Yes (Other)
  Sender: FDA-Public Use
  Company Number: None

PATIENT
  Sex: Female
  Weight: 79.3795 kg

DRUGS (3)
  1. POLYETHYLENE GLYCOL 3350 [Suspect]
     Indication: CONSTIPATION
     Dosage: 17 MG. IN SOLUTION NIGHTLY PO
     Route: 048
     Dates: start: 20080505, end: 20080505
  2. POLYETHYLENE GLYCOL 3350 [Suspect]
     Indication: DYSGEUSIA
     Dosage: 17 MG. IN SOLUTION NIGHTLY PO
     Route: 048
     Dates: start: 20080505, end: 20080505
  3. POLYETHYLENE GLYCOL 3350 [Suspect]
     Indication: IRRITABLE BOWEL SYNDROME
     Dosage: 17 MG. IN SOLUTION NIGHTLY PO
     Route: 048
     Dates: start: 20080505, end: 20080505

REACTIONS (5)
  - CHOKING [None]
  - DYSGEUSIA [None]
  - MEDICATION TAMPERING [None]
  - PHARMACEUTICAL PRODUCT COMPLAINT [None]
  - POOR QUALITY DRUG ADMINISTERED [None]
